FAERS Safety Report 25484643 (Version 1)
Quarter: 2025Q2

REPORT INFORMATION
  Report Type: Spontaneous
  Country: US (occurrence: None)
  Receive Date: 20250627
  Receipt Date: 20250627
  Transmission Date: 20250717
  Serious: No
  Sender: FDA-CTU
  Company Number: None

PATIENT

DRUGS (3)
  1. SILDENAFIL [Suspect]
     Active Substance: SILDENAFIL
  2. TYVASO [Suspect]
     Active Substance: TREPROSTINIL
  3. VELETRI [Suspect]
     Active Substance: EPOPROSTENOL

REACTIONS (1)
  - Hospitalisation [None]
